FAERS Safety Report 22131144 (Version 1)
Quarter: 2023Q1

REPORT INFORMATION
  Report Type: Spontaneous
  Country: DK (occurrence: DK)
  Receive Date: 20230323
  Receipt Date: 20230323
  Transmission Date: 20230417
  Serious: Yes (Other)
  Sender: FDA-Public Use
  Company Number: DK-TEVA-2023-DK-2859889

PATIENT
  Age: 15 Year
  Sex: Male

DRUGS (1)
  1. OXYCODONE HYDROCHLORIDE [Suspect]
     Active Substance: OXYCODONE HYDROCHLORIDE
     Indication: Product used for unknown indication
     Dosage: UNK
     Route: 065
     Dates: start: 2019

REACTIONS (8)
  - Dependence [Recovering/Resolving]
  - Intentional product misuse [Recovering/Resolving]
  - Euphoric mood [Recovering/Resolving]
  - Feeling abnormal [Unknown]
  - Feeling abnormal [Recovering/Resolving]
  - Abdominal discomfort [Recovering/Resolving]
  - Tremor [Recovering/Resolving]
  - Withdrawal syndrome [Unknown]
